FAERS Safety Report 8218723-5 (Version None)
Quarter: 2012Q1

REPORT INFORMATION
  Report Type: 
  Country: None (occurrence: None)
  Receive Date: 20120319
  Receipt Date: 20120312
  Transmission Date: 20120608
  Serious: Yes (Hospitalization)
  Sender: FDA-Public Use
  Company Number: PHHY2012DE022494

PATIENT
  Sex: Female

DRUGS (1)
  1. EXTAVIA [Suspect]
     Indication: MULTIPLE SCLEROSIS
     Dosage: 250 UG, QOD
     Route: 058
     Dates: start: 20111212, end: 20120101

REACTIONS (11)
  - POLLAKIURIA [None]
  - PARAESTHESIA [None]
  - MIGRAINE [None]
  - URINARY INCONTINENCE [None]
  - VERTIGO [None]
  - LYMPHADENOPATHY [None]
  - HEART RATE INCREASED [None]
  - CIRCULATORY COLLAPSE [None]
  - INFLUENZA LIKE ILLNESS [None]
  - SWELLING [None]
  - PAIN [None]
